FAERS Safety Report 4839575-7 (Version None)
Quarter: 2005Q4

REPORT INFORMATION
  Report Type: 
  Country: None (occurrence: None)
  Receive Date: 20051125
  Receipt Date: 20051116
  Transmission Date: 20060501
  Serious: Yes (Life-Threatening, Hospitalization)
  Sender: FDA-Public Use
  Company Number: 2005-11-0987

PATIENT
  Age: 49 Year
  Sex: Male
  Weight: 65 kg

DRUGS (4)
  1. PEG-INTRON [Suspect]
     Indication: HEPATITIS C
     Dosage: 100 MCG QW SUBCUTANEOUS
     Route: 058
     Dates: start: 20050301, end: 20050816
  2. REBETOL [Suspect]
     Indication: HEPATITIS C
     Dosage: 800 OR 600 MG ORAL
     Route: 048
     Dates: start: 20050301, end: 20050816
  3. FILGRASTIM [Concomitant]
  4. KLARICID [Concomitant]

REACTIONS (1)
  - MYELODYSPLASTIC SYNDROME [None]
